FAERS Safety Report 9508068 (Version 3)
Quarter: 2013Q4

REPORT INFORMATION
  Report Type: Spontaneous
  Country: IT (occurrence: IT)
  Receive Date: 20130909
  Receipt Date: 20131022
  Transmission Date: 20140711
  Serious: Yes (Hospitalization)
  Sender: FDA-Public Use
  Company Number: PHHY2013IT097955

PATIENT
  Sex: Female

DRUGS (7)
  1. OXYCONTIN [Suspect]
     Indication: INTENTIONAL SELF-INJURY
     Route: 048
     Dates: start: 20130821, end: 20130821
  2. TELMISARTAN [Concomitant]
     Indication: HYPERTENSION
  3. BISOPROLOL [Concomitant]
  4. OMEPRAZOLE [Concomitant]
     Indication: GASTRITIS PROPHYLAXIS
  5. ZOLPIDEM [Suspect]
     Indication: INTENTIONAL SELF-INJURY
     Dates: start: 20130821, end: 20130821
  6. EN [Suspect]
     Indication: INTENTIONAL SELF-INJURY
     Dosage: 40 ML, ONCE/SINGLE
     Route: 048
     Dates: start: 20130821, end: 20130821
  7. DEPALGOS [Suspect]
     Indication: INTENTIONAL SELF-INJURY
     Route: 048
     Dates: start: 20130821, end: 20130821

REACTIONS (2)
  - Coma [Recovered/Resolved]
  - Drug abuse [Recovered/Resolved]
